FAERS Safety Report 11110625 (Version 1)
Quarter: 2015Q2

REPORT INFORMATION
  Report Type: Spontaneous
  Country: FR (occurrence: FR)
  Receive Date: 20150513
  Receipt Date: 20150513
  Transmission Date: 20150821
  Serious: Yes (Hospitalization)
  Sender: FDA-Public Use
  Company Number: FR-JNJFOC-20150502302

PATIENT
  Age: 77 Year
  Sex: Male

DRUGS (17)
  1. IMBRUVICA [Suspect]
     Active Substance: IBRUTINIB
     Indication: B-CELL LYMPHOMA
     Route: 048
     Dates: start: 20141213, end: 2015
  2. BISOCE [Concomitant]
     Active Substance: BISOPROLOL
  3. DIFFU K [Concomitant]
     Active Substance: POTASSIUM CHLORIDE
  4. KARDEGIC [Concomitant]
     Active Substance: ASPIRIN LYSINE
  5. IMBRUVICA [Suspect]
     Active Substance: IBRUTINIB
     Indication: B-CELL LYMPHOMA
     Route: 048
     Dates: start: 20150408, end: 20150420
  6. ZELITREX [Concomitant]
     Active Substance: VALACYCLOVIR HYDROCHLORIDE
  7. EUPANTOL [Concomitant]
     Active Substance: PANTOPRAZOLE SODIUM
  8. TAHOR [Concomitant]
     Active Substance: ATORVASTATIN CALCIUM
  9. TOPALGIC [Concomitant]
     Active Substance: TRAMADOL
  10. MAGNE-B6 [Concomitant]
     Active Substance: MAGNESIUM LACTATE\PYRIDOXINE HYDROCHLORIDE
  11. INNOHEP [Concomitant]
     Active Substance: TINZAPARIN SODIUM
     Route: 058
  12. GLUCOPHAGE [Concomitant]
     Active Substance: METFORMIN HYDROCHLORIDE
  13. JANUVIA [Concomitant]
     Active Substance: SITAGLIPTIN PHOSPHATE
  14. MECIR [Concomitant]
     Active Substance: TAMSULOSIN HYDROCHLORIDE
  15. LANTUS [Concomitant]
     Active Substance: INSULIN GLARGINE
  16. LOXEN [Concomitant]
     Active Substance: NICARDIPINE HYDROCHLORIDE
  17. LASILIX [Concomitant]
     Active Substance: FUROSEMIDE

REACTIONS (13)
  - Tachyarrhythmia [Recovered/Resolved with Sequelae]
  - Respiratory tract infection [Recovering/Resolving]
  - Vertigo [Recovered/Resolved]
  - Hyperthermia [Recovered/Resolved]
  - Oxygen saturation abnormal [Recovered/Resolved]
  - Dyspnoea exertional [Recovered/Resolved]
  - Vomiting [Recovered/Resolved]
  - Dry mouth [Recovered/Resolved]
  - Diarrhoea [Recovered/Resolved]
  - Asthenia [Recovered/Resolved]
  - Nausea [Recovered/Resolved]
  - Hot flush [Recovered/Resolved]
  - Muscle spasms [Recovered/Resolved]

NARRATIVE: CASE EVENT DATE: 201501
